FAERS Safety Report 12632317 (Version 2)
Quarter: 2016Q3

REPORT INFORMATION
  Report Type: Spontaneous
  Country: US (occurrence: US)
  Receive Date: 20160808
  Receipt Date: 20160808
  Transmission Date: 20161109
  Serious: No
  Sender: FDA-Public Use
  Company Number: US-BEH-2016062387

PATIENT
  Age: 54 Year
  Sex: Female
  Weight: 105 kg

DRUGS (41)
  1. HIZENTRA [Suspect]
     Active Substance: HUMAN IMMUNOGLOBULIN G
     Route: 058
  2. MONUROL [Concomitant]
     Active Substance: FOSFOMYCIN TROMETHAMINE
  3. NASACORT [Concomitant]
     Active Substance: TRIAMCINOLONE ACETONIDE
  4. ZOFRAN [Concomitant]
     Active Substance: ONDANSETRON HYDROCHLORIDE
  5. CLOBETASOL [Concomitant]
     Active Substance: CLOBETASOL
  6. ABILIFY [Concomitant]
     Active Substance: ARIPIPRAZOLE
  7. ZYRTEC [Concomitant]
     Active Substance: CETIRIZINE HYDROCHLORIDE
  8. HIZENTRA [Suspect]
     Active Substance: HUMAN IMMUNOGLOBULIN G
     Route: 058
  9. HIZENTRA [Suspect]
     Active Substance: HUMAN IMMUNOGLOBULIN G
     Route: 058
  10. DIPHENHYDRAMINE. [Concomitant]
     Active Substance: DIPHENHYDRAMINE
  11. NYSTOP [Concomitant]
     Active Substance: NYSTATIN
  12. AMITRIPTYLINE [Concomitant]
     Active Substance: AMITRIPTYLINE
  13. LACTULOSE. [Concomitant]
     Active Substance: LACTULOSE
  14. MELATONIN [Concomitant]
     Active Substance: MELATONIN
  15. VITAMIN D [Concomitant]
     Active Substance: CHOLECALCIFEROL
  16. FUROSEMIDE. [Concomitant]
     Active Substance: FUROSEMIDE
  17. LIDOCAINE/PRILOCAINE [Concomitant]
     Active Substance: LIDOCAINE\PRILOCAINE
  18. ATACAND [Concomitant]
     Active Substance: CANDESARTAN CILEXETIL
  19. KETOROLAC [Concomitant]
     Active Substance: KETOROLAC\KETOROLAC TROMETHAMINE
  20. FISH OIL [Concomitant]
     Active Substance: FISH OIL
  21. DIFLUCAN [Concomitant]
     Active Substance: FLUCONAZOLE
  22. POTASSIUM [Concomitant]
     Active Substance: POTASSIUM
  23. ASPIRIN. [Concomitant]
     Active Substance: ASPIRIN
  24. AZO CRANBERRY [Concomitant]
  25. A-Z MULTIVITAMINS [Concomitant]
  26. ESTRADIOL. [Concomitant]
     Active Substance: ESTRADIOL
  27. CALCIUM [Concomitant]
     Active Substance: CALCIUM
  28. HIZENTRA [Suspect]
     Active Substance: HUMAN IMMUNOGLOBULIN G
     Indication: IMMUNODEFICIENCY COMMON VARIABLE
     Route: 058
  29. ACETAMINOPHEN. [Concomitant]
     Active Substance: ACETAMINOPHEN
  30. OFLOXACIN. [Concomitant]
     Active Substance: OFLOXACIN
  31. OMEPRAZOLE. [Concomitant]
     Active Substance: OMEPRAZOLE
  32. CREON [Concomitant]
     Active Substance: PANCRELIPASE AMYLASE\PANCRELIPASE LIPASE\PANCRELIPASE PROTEASE
  33. LEXAPRO [Concomitant]
     Active Substance: ESCITALOPRAM OXALATE
  34. SYNTHROID [Concomitant]
     Active Substance: LEVOTHYROXINE SODIUM
  35. EPINEPHRINE. [Concomitant]
     Active Substance: EPINEPHRINE
  36. PATANOL [Concomitant]
     Active Substance: OLOPATADINE HYDROCHLORIDE
  37. CLEOCIN [Concomitant]
     Active Substance: CLINDAMYCIN PHOSPHATE
  38. ACIDOPHILUS [Concomitant]
     Active Substance: LACTOBACILLUS ACIDOPHILUS
  39. PULMICORT TURBUHALER [Concomitant]
     Active Substance: BUDESONIDE
  40. XANAX [Concomitant]
     Active Substance: ALPRAZOLAM
  41. FROVA [Concomitant]
     Active Substance: FROVATRIPTAN SUCCINATE

REACTIONS (2)
  - Rash pruritic [Unknown]
  - Fungal infection [Unknown]

NARRATIVE: CASE EVENT DATE: 20160305
